FAERS Safety Report 16464449 (Version 1)
Quarter: 2019Q2

REPORT INFORMATION
  Report Type: Spontaneous
  Country: GB (occurrence: GB)
  Receive Date: 20190621
  Receipt Date: 20190621
  Transmission Date: 20190711
  Serious: Yes (Disabling)
  Sender: FDA-Public Use
  Company Number: GB-MYLANLABS-2019M1058052

PATIENT
  Age: 71 Year
  Sex: Female

DRUGS (2)
  1. FLUDROCORTISONE [Concomitant]
     Active Substance: FLUDROCORTISONE
  2. DONEPEZIL. [Suspect]
     Active Substance: DONEPEZIL
     Indication: DEMENTIA WITH LEWY BODIES
     Dosage: 5 MILLIGRAM
     Route: 048
     Dates: start: 201811

REACTIONS (1)
  - Muscle atrophy [Not Recovered/Not Resolved]

NARRATIVE: CASE EVENT DATE: 201811
